FAERS Safety Report 25099819 (Version 1)
Quarter: 2025Q1

REPORT INFORMATION
  Report Type: Spontaneous
  Country: US (occurrence: US)
  Receive Date: 20250320
  Receipt Date: 20250320
  Transmission Date: 20250409
  Serious: Yes (Death, Other)
  Sender: BAYER HEALTHCARE LLC
  Company Number: US-BAYER-2025A037702

PATIENT
  Sex: Male

DRUGS (5)
  1. TINACTIN [Suspect]
     Active Substance: TOLNAFTATE
  2. LOTRIMIN ANTIFUNGAL (MICONAZOLE NITRATE) [Suspect]
     Active Substance: MICONAZOLE NITRATE
  3. Equate [Concomitant]
  4. Scholls [Concomitant]
  5. MENTHOL\ZINC OXIDE [Concomitant]
     Active Substance: MENTHOL\ZINC OXIDE

REACTIONS (1)
  - Mesothelioma malignant [Fatal]
